FAERS Safety Report 4806483-7 (Version None)
Quarter: 2005Q4

REPORT INFORMATION
  Report Type: 
  Country: None (occurrence: None)
  Receive Date: 20051021
  Receipt Date: 20051010
  Transmission Date: 20060501
  Serious: Yes (Other)
  Sender: FDA-Public Use
  Company Number: 2005GB01971

PATIENT
  Age: 43 Year
  Sex: Female

DRUGS (9)
  1. PROPOFOL [Suspect]
     Route: 065
  2. REMIFENTANIL HYDROCHLORIDE [Suspect]
     Route: 065
  3. ATRACURIUM BESYLATE [Suspect]
     Route: 065
  4. IRON [Concomitant]
     Route: 065
  5. ISOFLURANE [Concomitant]
     Route: 065
  6. BUPIVACAINE [Concomitant]
     Route: 065
  7. HYDROCORTISONE [Concomitant]
     Route: 065
  8. LIOTHYRONINE [Concomitant]
     Route: 065
  9. DEXAMETHASONE [Concomitant]
     Route: 065

REACTIONS (3)
  - BLOOD CORTISOL DECREASED [None]
  - HEART RATE DECREASED [None]
  - HYPOTENSION [None]
